FAERS Safety Report 25363523 (Version 1)
Quarter: 2025Q2

REPORT INFORMATION
  Report Type: Spontaneous
  Country: US (occurrence: None)
  Receive Date: 20250527
  Receipt Date: 20250527
  Transmission Date: 20250717
  Serious: Yes (Hospitalization)
  Sender: FDA-CTU
  Company Number: None

PATIENT
  Age: 57 Year
  Sex: Male
  Weight: 104.0 kg

DRUGS (1)
  1. ENFORTUMAB VEDOTIN [Suspect]
     Active Substance: ENFORTUMAB VEDOTIN
     Indication: Hepatocellular carcinoma
     Route: 042
     Dates: start: 20250422, end: 20250518

REACTIONS (14)
  - Nausea [None]
  - Vomiting [None]
  - Dysphagia [None]
  - Hypophagia [None]
  - Back pain [None]
  - Blood glucose increased [None]
  - Intestinal dilatation [None]
  - Enteritis [None]
  - Rash [None]
  - Dermatitis [None]
  - Blister [None]
  - Dyspnoea [None]
  - Lactic acidosis [None]
  - Hospice care [None]

NARRATIVE: CASE EVENT DATE: 20250509
